FAERS Safety Report 5125497-3 (Version None)
Quarter: 2006Q3

REPORT INFORMATION
  Report Type: 
  Country: None (occurrence: None)
  Receive Date: 20060822
  Receipt Date: 20060627
  Transmission Date: 20061208
  Serious: No
  Sender: FDA-Public Use
  Company Number: PHEH2006US08364

PATIENT

DRUGS (1)
  1. ENABLEX [Suspect]

REACTIONS (2)
  - BACK PAIN [None]
  - MUSCULOSKELETAL CHEST PAIN [None]
